FAERS Safety Report 8996991 (Version 1)
Quarter: 2013Q1

REPORT INFORMATION
  Report Type: Spontaneous
  Country: US (occurrence: US)
  Receive Date: 20130104
  Receipt Date: 20130104
  Transmission Date: 20140127
  Serious: No
  Sender: FDA-Public Use
  Company Number: US-PFIZER INC-2013003270

PATIENT
  Age: 55 Year
  Sex: Female
  Weight: 90.7 kg

DRUGS (6)
  1. LYRICA [Suspect]
     Indication: FIBROMYALGIA
     Dosage: 300 MG, UNK
     Route: 048
     Dates: start: 2006
  2. AMBIEN [Concomitant]
     Dosage: 10 MG, 1X/DAY
  3. KLONOPIN [Concomitant]
     Dosage: 1 MG, 1X/DAY
  4. MS CONTIN [Concomitant]
     Dosage: UNK
  5. ATENOLOL [Concomitant]
     Dosage: 25 MG, 1X/DAY
  6. HYDROCHLOROTHIAZIDE [Concomitant]
     Dosage: 37.5 MG, 1X/DAY

REACTIONS (1)
  - Influenza [Recovering/Resolving]
